FAERS Safety Report 6939540-X (Version None)
Quarter: 2010Q3

REPORT INFORMATION
  Report Type: 
  Country: None (occurrence: None)
  Receive Date: 20100819
  Receipt Date: 20100812
  Transmission Date: 20110219
  Serious: Yes (Life-Threatening, Hospitalization)
  Sender: FDA-Public Use
  Company Number: WAES 1008USA01773

PATIENT
  Age: 70 Year
  Sex: Female

DRUGS (10)
  1. ZOCOR [Suspect]
     Indication: ACUTE CORONARY SYNDROME
     Dosage: 40 MG DAILY PO
     Route: 048
     Dates: start: 20070529, end: 20100726
  2. PLACEBO (UNSPECIFIED) [Suspect]
     Indication: ACUTE CORONARY SYNDROME
     Dosage: PO
     Route: 048
     Dates: start: 20070529, end: 20100726
  3. TAB PLACEBO (UNSPECIFIED) [Suspect]
     Indication: ACUTE CORONARY SYNDROME
     Dosage: PO
     Route: 048
     Dates: start: 20070529, end: 20100726
  4. ALBYL-E [Concomitant]
  5. GLUCOPHAGE [Concomitant]
  6. LANTUS [Concomitant]
  7. LEVOTHYROXINE SODIUM [Concomitant]
  8. NOVORAPID [Concomitant]
  9. PLAVIX [Concomitant]
  10. SELO-ZOK [Concomitant]

REACTIONS (1)
  - TRANSITIONAL CELL CARCINOMA [None]
